FAERS Safety Report 7474044-X (Version None)
Quarter: 2011Q2

REPORT INFORMATION
  Report Type: 
  Country: None (occurrence: None)
  Receive Date: 20110511
  Receipt Date: 20110502
  Transmission Date: 20111010
  Serious: Yes (Hospitalization)
  Sender: FDA-Public Use
  Company Number: PHHY2011IT36939

PATIENT
  Sex: Male

DRUGS (2)
  1. TASIGNA [Suspect]
     Dosage: 800 MG, UNK
     Route: 048
  2. TASIGNA [Suspect]
     Indication: CHRONIC MYELOID LEUKAEMIA
     Dosage: 800 MG, UNK
     Route: 048
     Dates: start: 20051101, end: 20110301

REACTIONS (3)
  - FEMORAL ARTERIAL STENOSIS [None]
  - CORONARY ARTERY DISEASE [None]
  - INTERMITTENT CLAUDICATION [None]
